FAERS Safety Report 21450686 (Version 1)
Quarter: 2022Q4

REPORT INFORMATION
  Report Type: Report from Study
  Country: US (occurrence: US)
  Receive Date: 20221013
  Receipt Date: 20221013
  Transmission Date: 20230113
  Serious: Yes (Other)
  Sender: FDA-Public Use
  Company Number: US-JNJFOC-20221012386

PATIENT

DRUGS (4)
  1. REMICADE [Suspect]
     Active Substance: INFLIXIMAB
     Indication: COVID-19
     Dosage: ADMINISTERED ON DAY 1 AS A SINGLE DOSE INTRAVENOUS INFUSION OF 5 MG/KG OVER AT LEAST 2 HOURS
     Route: 041
  2. REMDESIVIR [Concomitant]
     Active Substance: REMDESIVIR
     Indication: Product used for unknown indication
     Route: 065
  3. TOCILIZUMAB [Concomitant]
     Active Substance: TOCILIZUMAB
  4. BARICITINIB [Concomitant]
     Active Substance: BARICITINIB

REACTIONS (13)
  - Haematological infection [Unknown]
  - Pneumonia bacterial [Unknown]
  - Tuberculosis [Unknown]
  - Systemic candida [Unknown]
  - Adverse event [Unknown]
  - Fungal infection [Unknown]
  - Urinary tract infection [Unknown]
  - Bacterial infection [Unknown]
  - Oropharyngeal candidiasis [Unknown]
  - Fungal infection [Unknown]
  - Viral infection [Unknown]
  - Infusion related reaction [Unknown]
  - Off label use [Unknown]
